FAERS Safety Report 6523450-6 (Version None)
Quarter: 2009Q4

REPORT INFORMATION
  Report Type: 
  Country: None (occurrence: None)
  Receive Date: 20091222
  Receipt Date: 20091207
  Transmission Date: 20100525
  Serious: Yes (Hospitalization, Other)
  Sender: FDA-Public Use
  Company Number: 002792

PATIENT
  Age: 56 Year
  Sex: Female
  Weight: 57 kg

DRUGS (4)
  1. THEO-24 [Suspect]
     Indication: ASTHMA
     Dates: start: 20051101
  2. SELECTIVE BETA-2-ADRENORECEPTOR AGONISTS (B-2 AGONIST) [Suspect]
     Indication: ASTHMA
     Dosage: RESPIRATORY (INHALATION
     Route: 055
     Dates: start: 20051101
  3. LEUKOTRIENE MODIFIERS [Suspect]
     Indication: ASTHMA
     Dates: start: 20051101
  4. CORTICOSTEROIDS (INHALED CORTICOSTEROID) [Suspect]
     Indication: ASTHMA
     Dosage: RESPIRATORY INHALATION
     Route: 055
     Dates: start: 20051101

REACTIONS (5)
  - ASTHMA [None]
  - BRONCHIOLITIS [None]
  - EOSINOPHILIC BRONCHITIS [None]
  - LUNG NEOPLASM [None]
  - NEUTROPHIL PERCENTAGE DECREASED [None]
